FAERS Safety Report 9498813 (Version 2)
Quarter: 2013Q3

REPORT INFORMATION
  Report Type: Spontaneous
  Country: US (occurrence: None)
  Receive Date: 20130830
  Receipt Date: 20130926
  Transmission Date: 20140515
  Serious: Yes (Other)
  Sender: FDA-Public Use
  Company Number: 2013SA085276

PATIENT
  Age: 55 Year
  Sex: Female

DRUGS (1)
  1. ICY HOT BACK [Suspect]
     Indication: BACK PAIN
     Dates: start: 201306

REACTIONS (3)
  - Application site burn [None]
  - Pain [None]
  - Muscle spasms [None]
